FAERS Safety Report 5938136-6 (Version None)
Quarter: 2008Q4

REPORT INFORMATION
  Report Type: 
  Country: None (occurrence: None)
  Receive Date: 20081031
  Receipt Date: 20081028
  Transmission Date: 20090506
  Serious: Yes (Other)
  Sender: FDA-Public Use
  Company Number: US-ROXANE LABORATORIES, INC.-2008-RO-00170RO

PATIENT
  Age: 38 Year
  Sex: Female

DRUGS (8)
  1. PREDNISONE [Suspect]
     Indication: HEPATIC CIRRHOSIS
     Dosage: 10MG
  2. AZATHIOPRINE [Suspect]
     Indication: HEPATIC CIRRHOSIS
     Dosage: 75MG
  3. IMMUNE GLOBULIN INTRAVENOUS (HUMAN) [Suspect]
     Indication: HEPATIC CIRRHOSIS
     Route: 042
  4. TRIMETHOPRIM + SULFAMETHOXAZOLE [Concomitant]
     Indication: ANTIBIOTIC THERAPY
  5. AMPICILLIN AND SULBACTAM [Concomitant]
     Indication: ANTIBIOTIC THERAPY
  6. LEVOFLOXACIN [Concomitant]
     Indication: ANTIBIOTIC THERAPY
  7. CIPROFLOXACIN [Concomitant]
     Indication: MYCOBACTERIAL INFECTION
  8. CLARITHROMYCIN [Concomitant]
     Indication: MYCOBACTERIAL INFECTION

REACTIONS (1)
  - MYCOBACTERIAL INFECTION [None]
